FAERS Safety Report 25648112 (Version 2)
Quarter: 2025Q4

REPORT INFORMATION
  Report Type: Spontaneous
  Country: US (occurrence: US)
  Receive Date: 20250806
  Receipt Date: 20251203
  Transmission Date: 20260118
  Serious: No
  Sender: LEO PHARM
  Company Number: US-LEO Pharma-381850

PATIENT
  Age: 78 Year
  Sex: Female

DRUGS (1)
  1. ADBRY [Suspect]
     Active Substance: TRALOKINUMAB-LDRM
     Indication: Dermatitis atopic
     Dosage: TREATMENT IS ONGOING
     Route: 058
     Dates: start: 202410

REACTIONS (3)
  - Injection site reaction [Not Recovered/Not Resolved]
  - Injection site erythema [Unknown]
  - Injection site pruritus [Recovering/Resolving]

NARRATIVE: CASE EVENT DATE: 20250729
